FAERS Safety Report 7555243-5 (Version None)
Quarter: 2011Q2

REPORT INFORMATION
  Report Type: 
  Country: None (occurrence: None)
  Receive Date: 20110617
  Receipt Date: 20110608
  Transmission Date: 20111010
  Serious: Yes (Hospitalization)
  Sender: FDA-Public Use
  Company Number: IT-ASTRAZENECA-2011SE35292

PATIENT
  Age: 29832 Day
  Sex: Male

DRUGS (1)
  1. LUCEN [Suspect]
     Indication: DYSPEPSIA
     Route: 048
     Dates: start: 20110511, end: 20110518

REACTIONS (1)
  - DRUG ERUPTION [None]
